FAERS Safety Report 21653080 (Version 3)
Quarter: 2023Q1

REPORT INFORMATION
  Report Type: Spontaneous
  Country: US (occurrence: US)
  Receive Date: 20221128
  Receipt Date: 20230125
  Transmission Date: 20230418
  Serious: Yes (Other)
  Sender: FDA-Public Use
  Company Number: US-009507513-2211USA006494

PATIENT
  Age: 76 Year
  Sex: Female

DRUGS (13)
  1. PRIMAXIN IV [Suspect]
     Active Substance: CILASTATIN SODIUM\IMIPENEM
     Indication: Pneumonia bacterial
     Dosage: 500 MG 2X/DAY
     Route: 042
     Dates: start: 20221017
  2. NUZYRA [Suspect]
     Active Substance: OMADACYCLINE
     Indication: Pneumonia bacterial
     Dosage: 300 MG 1X DAY
     Route: 048
     Dates: start: 20221017
  3. AMIKACIN [Suspect]
     Active Substance: AMIKACIN
     Indication: Pneumonia bacterial
     Dosage: 1000 MG 3 X WEEK
     Route: 042
     Dates: start: 20221017
  4. ARIKAYCE [Suspect]
     Active Substance: AMIKACIN
     Dosage: UNK
  5. CLOFAZIMINE [Suspect]
     Active Substance: CLOFAZIMINE
     Dosage: 1 PILLS, QD
  6. SYNTHROID [Concomitant]
     Active Substance: LEVOTHYROXINE SODIUM
     Dosage: UNK
  7. TELMISARTAN [Concomitant]
     Active Substance: TELMISARTAN
  8. RISEDRONATE SODIUM [Concomitant]
     Active Substance: RISEDRONATE SODIUM
  9. AMLODIPINE [Concomitant]
     Active Substance: AMLODIPINE BESYLATE
  10. ALBUTEROL [Concomitant]
     Active Substance: ALBUTEROL
  11. VITAMIN C [Concomitant]
     Active Substance: ASCORBIC ACID
  12. CHOLECALCIFEROL [Concomitant]
     Active Substance: CHOLECALCIFEROL
  13. AZELASTINE [Concomitant]
     Active Substance: AZELASTINE

REACTIONS (8)
  - Colitis ulcerative [Not Recovered/Not Resolved]
  - Fatigue [Recovering/Resolving]
  - Blood sodium decreased [Recovering/Resolving]
  - Haematocrit decreased [Recovering/Resolving]
  - Red blood cell count decreased [Recovering/Resolving]
  - Haemoglobin decreased [Recovering/Resolving]
  - Rash pruritic [Not Recovered/Not Resolved]
  - Rash papular [Not Recovered/Not Resolved]

NARRATIVE: CASE EVENT DATE: 20221001
